FAERS Safety Report 8571391 (Version 13)
Quarter: 2014Q4

REPORT INFORMATION
  Report Type: Report from Study
  Country: CA (occurrence: CA)
  Receive Date: 20120521
  Receipt Date: 20141211
  Transmission Date: 20150529
  Serious: Yes (Hospitalization, Other)
  Sender: FDA-Public Use
  Company Number: CA-ROCHE-1067718

PATIENT
  Age: 54 Year
  Sex: Female
  Weight: 102 kg

DRUGS (6)
  1. ACTEMRA [Suspect]
     Active Substance: TOCILIZUMAB
     Route: 042
     Dates: start: 20131203
  2. PREDNISONE. [Concomitant]
     Active Substance: PREDNISONE
  3. ACTEMRA [Suspect]
     Active Substance: TOCILIZUMAB
     Route: 042
     Dates: start: 20130621
  4. ACTEMRA [Suspect]
     Active Substance: TOCILIZUMAB
     Indication: RHEUMATOID ARTHRITIS
     Route: 042
     Dates: start: 20110520, end: 20140605
  5. ACTEMRA [Suspect]
     Active Substance: TOCILIZUMAB
     Route: 042
     Dates: start: 20110623
  6. ACTEMRA [Suspect]
     Active Substance: TOCILIZUMAB
     Route: 042
     Dates: start: 20111114, end: 20120426

REACTIONS (11)
  - Bladder injury [Recovered/Resolved]
  - Drug ineffective [Unknown]
  - Infection [Unknown]
  - Weight increased [Not Recovered/Not Resolved]
  - Cellulitis [Unknown]
  - Furuncle [Recovering/Resolving]
  - Cholecystitis [Recovered/Resolved]
  - Weight decreased [Recovering/Resolving]
  - Infection [Unknown]
  - Laceration [Recovered/Resolved]
  - Nasopharyngitis [Recovering/Resolving]

NARRATIVE: CASE EVENT DATE: 2012
